FAERS Safety Report 12548628 (Version 1)
Quarter: 2016Q3

REPORT INFORMATION
  Report Type: Spontaneous
  Country: US (occurrence: US)
  Receive Date: 20160712
  Receipt Date: 20160712
  Transmission Date: 20161109
  Serious: Yes (Death, Hospitalization)
  Sender: FDA-Public Use
  Company Number: US-SCIEGEN PHARMACEUTICALS INC-2016SCILIT00297

PATIENT
  Age: 63 Year
  Sex: Male

DRUGS (2)
  1. FLUOXETINE CAPSULES, USP [Suspect]
     Active Substance: FLUOXETINE HYDROCHLORIDE
     Indication: CONVERSION DISORDER
     Dosage: UNK
     Route: 065
  2. LORAZEPAM. [Suspect]
     Active Substance: LORAZEPAM
     Indication: CONVERSION DISORDER
     Dosage: UNK
     Route: 065

REACTIONS (13)
  - Creutzfeldt-Jakob disease [None]
  - Clonus [Unknown]
  - Posturing [Unknown]
  - Mental status changes [Unknown]
  - Catatonia [Unknown]
  - Paranoia [Unknown]
  - Aphasia [Unknown]
  - Hyperreflexia [Unknown]
  - Metamorphopsia [Unknown]
  - Movement disorder [Unknown]
  - Myoclonus [Unknown]
  - Fall [Unknown]
  - Aphasia [None]
